FAERS Safety Report 5308715-8 (Version None)
Quarter: 2007Q2

REPORT INFORMATION
  Report Type: 
  Country: None (occurrence: None)
  Receive Date: 20070426
  Receipt Date: 20070420
  Transmission Date: 20071010
  Serious: Yes (Hospitalization)
  Sender: FDA-Public Use
  Company Number: FR-GLAXOSMITHKLINE-B0467955A

PATIENT
  Sex: Female

DRUGS (1)
  1. VALACYCLOVIR HCL [Suspect]
     Indication: HERPES ZOSTER
     Route: 048
     Dates: start: 20070101, end: 20070101

REACTIONS (7)
  - DERMATOSIS [None]
  - ECZEMA [None]
  - ECZEMA WEEPING [None]
  - FUNGAL INFECTION [None]
  - INTERTRIGO [None]
  - PRURIGO [None]
  - TOXIC SKIN ERUPTION [None]
